FAERS Safety Report 4830090-3 (Version None)
Quarter: 2005Q4

REPORT INFORMATION
  Report Type: 
  Country: None (occurrence: None)
  Receive Date: 20051117
  Receipt Date: 20051114
  Transmission Date: 20060501
  Serious: Yes (Death, Hospitalization)
  Sender: FDA-Public Use
  Company Number: DE-AVENTIS-200512593DE

PATIENT
  Age: 63 Year
  Sex: Male

DRUGS (6)
  1. TAXOTERE [Suspect]
     Dates: start: 20040201, end: 20040401
  2. TAXOTERE [Suspect]
     Dosage: DOSE: REDUCED DOSE
     Dates: start: 20050201
  3. ESTRACYT [Concomitant]
     Indication: PROSTATE CANCER
     Dates: start: 20010901, end: 20021101
  4. VELBE [Concomitant]
     Indication: PROSTATE CANCER
     Dates: start: 20020819, end: 20021101
  5. TURISTERON [Concomitant]
     Indication: PROSTATE CANCER
     Dates: start: 20021101, end: 20030301
  6. DEXAMETHASONE [Concomitant]
     Indication: PROSTATE CANCER
     Dates: start: 20021101, end: 20030301

REACTIONS (9)
  - ACUTE MYELOID LEUKAEMIA [None]
  - ANOREXIA [None]
  - DISORIENTATION [None]
  - HYPOAESTHESIA ORAL [None]
  - LEFT VENTRICULAR FAILURE [None]
  - SHOCK [None]
  - STRABISMUS [None]
  - SUBDURAL HAEMATOMA [None]
  - UNEVALUABLE EVENT [None]
